FAERS Safety Report 4486889-9 (Version None)
Quarter: 2004Q3

REPORT INFORMATION
  Report Type: 
  Country: None (occurrence: None)
  Receive Date: 20040921
  Receipt Date: 20031002
  Transmission Date: 20050211
  Serious: Yes (Hospitalization)
  Sender: FDA-Public Use
  Company Number: 163-20785-03100125

PATIENT
  Age: 59 Year
  Sex: Female

DRUGS (18)
  1. THALOMID [Suspect]
     Indication: MULTIPLE MYELOMA
     Dosage: SEE IMAGE
     Route: 048
     Dates: start: 20010604, end: 20011005
  2. THALOMID [Suspect]
     Indication: MULTIPLE MYELOMA
     Dosage: SEE IMAGE
     Route: 048
     Dates: start: 20021214, end: 20030604
  3. THALOMID [Suspect]
     Indication: MULTIPLE MYELOMA
     Dosage: SEE IMAGE
     Route: 048
     Dates: start: 20010109
  4. THALOMID [Suspect]
     Indication: MULTIPLE MYELOMA
     Dosage: SEE IMAGE
     Route: 048
     Dates: start: 20011129
  5. THALOMID [Suspect]
     Indication: MULTIPLE MYELOMA
     Dosage: SEE IMAGE
     Route: 048
     Dates: start: 20030101
  6. DEXAMETHASONE [Suspect]
     Indication: MULTIPLE MYELOMA
     Dosage: 40 MG, DAILY, ORAL
     Route: 048
     Dates: start: 20030401, end: 20030404
  7. DEXAMETHASONE [Suspect]
     Indication: MULTIPLE MYELOMA
     Dosage: 40 MG, DAILY, ORAL
     Route: 048
     Dates: start: 20030409, end: 20030412
  8. DEXAMETHASONE [Suspect]
     Indication: MULTIPLE MYELOMA
     Dosage: 40 MG, DAILY, ORAL
     Route: 048
     Dates: start: 20030417, end: 20030420
  9. INTERFERON ALPHA (INTERFERON ALFA) [Suspect]
     Indication: MULTIPLE MYELOMA
     Dosage: 2.5 MILLION UNITS, TIW, SUBCUTANEOUS
     Route: 058
     Dates: start: 20010912
  10. VASOTEC [Concomitant]
  11. ZANTAC [Concomitant]
  12. PLAQUENIL (HDYROXYCHLOROQUINE PHOSPHATE) [Concomitant]
  13. FAMVIR [Concomitant]
  14. COUMADIN [Concomitant]
  15. CLIMARA PATCH (ESTRADIOL) [Concomitant]
  16. AREDIA [Concomitant]
  17. PROCRIT (ETYRHROPOIETIN) [Concomitant]
  18. CALCIUM  (CALCIUM) [Concomitant]

REACTIONS (8)
  - CEREBRAL INFARCTION [None]
  - HEADACHE [None]
  - HYPERGLYCAEMIA [None]
  - HYPOAESTHESIA [None]
  - MENINGITIS PNEUMOCOCCAL [None]
  - NUCLEAR MAGNETIC RESONANCE IMAGING ABNORMAL [None]
  - PNEUMONIA [None]
  - TRANSIENT ISCHAEMIC ATTACK [None]
